FAERS Safety Report 20789444 (Version 3)
Quarter: 2022Q2

REPORT INFORMATION
  Report Type: Spontaneous
  Country: US (occurrence: US)
  Receive Date: 20220505
  Receipt Date: 20220511
  Transmission Date: 20220721
  Serious: Yes (Other)
  Sender: FDA-Public Use
  Company Number: US-SANOFI-01086164

PATIENT
  Sex: Female

DRUGS (1)
  1. CORTIZONE 10 EASY RELIEF [Suspect]
     Active Substance: HYDROCORTISONE
     Indication: Animal bite
     Dosage: UNK

REACTIONS (2)
  - Blindness [Unknown]
  - Drug ineffective [Unknown]
